FAERS Safety Report 7970725-X (Version None)
Quarter: 2011Q4

REPORT INFORMATION
  Report Type: 
  Country: None (occurrence: None)
  Receive Date: 20111212
  Receipt Date: 20111202
  Transmission Date: 20120403
  Serious: Yes (Other)
  Sender: FDA-Public Use
  Company Number: PHEH2011US011179

PATIENT
  Age: 41 Year
  Sex: Male

DRUGS (5)
  1. SINGULAIR [Concomitant]
  2. FORMOTEROL FUMARATE [Suspect]
  3. HYDROCHLOROTHIAZIDE [Concomitant]
  4. HYDROCORTONE [Concomitant]
  5. XANAX [Concomitant]

REACTIONS (1)
  - WRONG TECHNIQUE IN DRUG USAGE PROCESS [None]
